FAERS Safety Report 15876894 (Version 2)
Quarter: 2019Q2

REPORT INFORMATION
  Report Type: Spontaneous
  Country: US (occurrence: US)
  Receive Date: 20190127
  Receipt Date: 20190613
  Transmission Date: 20190711
  Serious: No
  Sender: FDA-Public Use
  Company Number: US-DSJP-DSU-2017-147268

PATIENT

DRUGS (2)
  1. BENICAR [Suspect]
     Active Substance: OLMESARTAN MEDOXOMIL
     Indication: PRODUCT USED FOR UNKNOWN INDICATION
     Dosage: UNK
     Dates: start: 201010
  2. BENICAR HCT [Suspect]
     Active Substance: HYDROCHLOROTHIAZIDE\OLMESARTAN MEDOXOMIL
     Indication: PRODUCT USED FOR UNKNOWN INDICATION
     Dosage: 40-25 MG, QD
     Route: 048
     Dates: end: 20170801

REACTIONS (5)
  - Abdominal pain [Recovered/Resolved]
  - Asthenia [Unknown]
  - Nausea [Recovered/Resolved]
  - Diarrhoea [Recovered/Resolved]
  - Fatigue [Unknown]

NARRATIVE: CASE EVENT DATE: 2011
